FAERS Safety Report 20916941 (Version 1)
Quarter: 2022Q2

REPORT INFORMATION
  Report Type: Spontaneous
  Country: GR (occurrence: GR)
  Receive Date: 20220606
  Receipt Date: 20220606
  Transmission Date: 20220721
  Serious: Yes (Death, Hospitalization, Other)
  Sender: FDA-Public Use
  Company Number: GR-ALVOGEN-2022-ALVOGEN-120486

PATIENT
  Age: 64 Year
  Sex: Female

DRUGS (1)
  1. BUPRENORPHINE [Suspect]
     Active Substance: BUPRENORPHINE
     Indication: Product used for unknown indication

REACTIONS (3)
  - Withdrawal syndrome [Fatal]
  - Stress cardiomyopathy [Fatal]
  - Ischaemic stroke [Fatal]
